FAERS Safety Report 9596610 (Version 1)
Quarter: 2013Q4

REPORT INFORMATION
  Report Type: Spontaneous
  Country: US (occurrence: US)
  Receive Date: 20131004
  Receipt Date: 20131004
  Transmission Date: 20140711
  Serious: No
  Sender: FDA-Public Use
  Company Number: US-AMGEN-USASP2012068530

PATIENT
  Age: 72 Year
  Sex: Female

DRUGS (4)
  1. ENBREL [Suspect]
     Indication: RHEUMATOID ARTHRITIS
     Dosage: 50 MG, QWK
     Dates: start: 20110426
  2. METHOTREXATE [Concomitant]
     Dosage: 7.5 MG, UNK
  3. PLAQUENIL                          /00072602/ [Concomitant]
     Dosage: 400 MG, QD
  4. SULFASALAZINE [Concomitant]
     Dosage: UNK

REACTIONS (4)
  - Rash papular [Not Recovered/Not Resolved]
  - Rash pruritic [Not Recovered/Not Resolved]
  - Skin swelling [Not Recovered/Not Resolved]
  - Cataract [Recovered/Resolved]
